FAERS Safety Report 22818307 (Version 3)
Quarter: 2024Q1

REPORT INFORMATION
  Report Type: Spontaneous
  Country: US (occurrence: US)
  Receive Date: 20230814
  Receipt Date: 20240315
  Transmission Date: 20240410
  Serious: Yes (Hospitalization, Disabling, Other)
  Sender: FDA-Public Use
  Company Number: US-LUPIN PHARMACEUTICALS INC.-2023-06617

PATIENT
  Age: 47 Year
  Sex: Male

DRUGS (1)
  1. ATORVASTATIN CALCIUM [Suspect]
     Active Substance: ATORVASTATIN CALCIUM
     Indication: Product used for unknown indication
     Dosage: 20 MG
     Route: 065

REACTIONS (4)
  - Weight decreased [Recovering/Resolving]
  - Immune-mediated myositis [Recovering/Resolving]
  - Gait inability [Recovering/Resolving]
  - Rhabdomyolysis [Recovering/Resolving]
